FAERS Safety Report 17167205 (Version 1)
Quarter: 2019Q4

REPORT INFORMATION
  Report Type: Spontaneous
  Country: US (occurrence: US)
  Receive Date: 20191217
  Receipt Date: 20191217
  Transmission Date: 20200122
  Serious: No
  Sender: FDA-Public Use
  Company Number: None

PATIENT
  Sex: Female

DRUGS (2)
  1. DIFFERIN [Suspect]
     Active Substance: ADAPALENE
  2. ALDACTONE [Suspect]
     Active Substance: SPIRONOLACTONE

REACTIONS (2)
  - Blood potassium increased [None]
  - Drug ineffective [None]
